FAERS Safety Report 24879866 (Version 1)
Quarter: 2025Q1

REPORT INFORMATION
  Report Type: Spontaneous
  Country: US (occurrence: None)
  Receive Date: 20250123
  Receipt Date: 20250123
  Transmission Date: 20250409
  Serious: Yes (Other)
  Sender: FDA-CTU
  Company Number: None

PATIENT
  Sex: Male

DRUGS (11)
  1. ABIRATERONE ACETATE [Suspect]
     Active Substance: ABIRATERONE ACETATE
     Indication: Prostate cancer
     Dosage: FREQUENCY : DAILY;?
     Route: 048
     Dates: start: 20241205
  2. ACETAMIN TAB 500MG [Concomitant]
  3. B COMPLEX CAP [Concomitant]
  4. DOCETAXEL [Concomitant]
     Active Substance: DOCETAXEL
  5. FINASTERIDE [Concomitant]
     Active Substance: FINASTERIDE
  6. LUPRON DEPOT [Concomitant]
     Active Substance: LEUPROLIDE ACETATE
  7. MAG OXIDE TAB 250MG [Concomitant]
  8. MULTIPLE VIT TAB [Concomitant]
  9. OMEPRAZOLE TAB 20MG [Concomitant]
  10. PROCHLORPER TAB 10MG [Concomitant]
  11. PSYLLIUM POW HUSK [Concomitant]

REACTIONS (9)
  - Alopecia [None]
  - Neuropathy peripheral [None]
  - Back injury [None]
  - Metastases to lung [None]
  - Metastases to bone [None]
  - Metastases to lymph nodes [None]
  - Fatigue [None]
  - Loss of personal independence in daily activities [None]
  - Diarrhoea [None]
